FAERS Safety Report 4497401-2 (Version None)
Quarter: 2004Q4

REPORT INFORMATION
  Report Type: 
  Country: None (occurrence: None)
  Receive Date: 20041110
  Receipt Date: 19990922
  Transmission Date: 20050328
  Serious: Yes (Other)
  Sender: FDA-Public Use
  Company Number: JP01-02950

PATIENT
  Sex: Female

DRUGS (3)
  1. RILUTEK [Suspect]
     Indication: AMYOTROPHIC LATERAL SCLEROSIS
     Route: 048
     Dates: start: 19990421, end: 19990904
  2. AMLODIN [Concomitant]
     Indication: HYPERTENSION
     Route: 048
     Dates: start: 19990421, end: 19990904
  3. ADALAT [Concomitant]
     Indication: HYPERTENSION
     Route: 048
     Dates: start: 19990421, end: 19990904

REACTIONS (4)
  - BLOOD CREATININE DECREASED [None]
  - BLOOD POTASSIUM INCREASED [None]
  - HAEMOLYSIS [None]
  - WHITE BLOOD CELL COUNT INCREASED [None]
